FAERS Safety Report 7370597-0 (Version None)
Quarter: 2011Q1

REPORT INFORMATION
  Report Type: 
  Country: None (occurrence: None)
  Receive Date: 20110323
  Receipt Date: 20110316
  Transmission Date: 20110831
  Serious: Yes (Other)
  Sender: FDA-Public Use
  Company Number: US-US-EMD SERONO, INC.-440003J10USA

PATIENT
  Sex: Male
  Weight: 64 kg

DRUGS (9)
  1. MORPHINE [Concomitant]
  2. SEROSTIM [Suspect]
     Indication: HIV WASTING SYNDROME
     Route: 058
     Dates: start: 20050101, end: 20100107
  3. SEROSTIM [Suspect]
  4. MIRTAZAPINE [Concomitant]
     Indication: DEPRESSION
  5. ZERIT [Concomitant]
     Indication: HIV TEST POSITIVE
     Dates: end: 20091112
  6. GABAPENTIN [Concomitant]
     Indication: NEUROPATHY PERIPHERAL
     Dates: end: 20100524
  7. NEXIUM [Concomitant]
     Indication: IRRITABLE BOWEL SYNDROME
     Route: 065
  8. VIRAMUNE [Concomitant]
     Indication: HIV TEST POSITIVE
     Route: 065
     Dates: end: 20091112
  9. PRILOSEC [Concomitant]
     Indication: IRRITABLE BOWEL SYNDROME
     Route: 065

REACTIONS (4)
  - COLITIS [None]
  - PROCTITIS [None]
  - ANAL CANCER STAGE 0 [None]
  - PAPILLOMA VIRAL INFECTION [None]
